FAERS Safety Report 6249697-4 (Version None)
Quarter: 2009Q2

REPORT INFORMATION
  Report Type: 
  Country: None (occurrence: None)
  Receive Date: 20090629
  Receipt Date: 20090504
  Transmission Date: 20091009
  Serious: No
  Sender: FDA-Public Use
  Company Number: US-BAYER-200911886BCC

PATIENT
  Age: 46 Year
  Sex: Male

DRUGS (1)
  1. ALEVE ALL DAY STRONG TABLETS [Suspect]
     Indication: DRUG USE FOR UNKNOWN INDICATION
     Dosage: UNIT DOSE: 220 MG
     Route: 048

REACTIONS (1)
  - NO ADVERSE EVENT [None]
